FAERS Safety Report 21034680 (Version 1)
Quarter: 2022Q3

REPORT INFORMATION
  Report Type: Spontaneous
  Country: CN (occurrence: CN)
  Receive Date: 20220701
  Receipt Date: 20220701
  Transmission Date: 20221027
  Serious: Yes (Hospitalization, Other)
  Sender: FDA-Public Use
  Company Number: None

PATIENT
  Age: 2 Year
  Sex: Male
  Weight: 11.2 kg

DRUGS (14)
  1. CYCLOPHOSPHAMIDE [Suspect]
     Active Substance: CYCLOPHOSPHAMIDE
     Indication: Thalassaemia
     Dosage: 0.45 G, QD, INJECTION
     Route: 041
     Dates: start: 20220606, end: 20220609
  2. DEXTROSE [Suspect]
     Active Substance: DEXTROSE
     Indication: Medication dilution
     Dosage: 100 ML, QD, INJECTION (CYCLOPHOSPHAMIDE 0.45G + 5% GS 100ML)
     Route: 041
     Dates: start: 20220606, end: 20220609
  3. SODIUM CHLORIDE [Suspect]
     Active Substance: SODIUM CHLORIDE
     Indication: Medication dilution
     Dosage: 100 ML, QD, INJECTION (FLUDARABINE 25MG + NS 100 ML)
     Route: 041
     Dates: start: 20220604, end: 20220606
  4. DEXTROSE [Suspect]
     Active Substance: DEXTROSE
     Indication: Medication dilution
     Dosage: 500 ML, QD, INJECTION (RABBIT ANTI-HUMAN THYMOCYTE IMMUNOGLOBULIN 25MG + 5% GS)
     Route: 041
     Dates: start: 20220607, end: 20220609
  5. THYMOGLOBULINE [Suspect]
     Active Substance: LAPINE T-LYMPHOCYTE IMMUNE GLOBULIN
     Indication: Thalassaemia
     Dosage: 25 MG, QD
     Route: 041
     Dates: start: 20220607, end: 20220609
  6. FLUDARA [Suspect]
     Active Substance: FLUDARABINE PHOSPHATE
     Indication: Stem cell transplant
     Dosage: 25 MG, QD
     Route: 041
     Dates: start: 20220604, end: 20220606
  7. FLUDARA [Suspect]
     Active Substance: FLUDARABINE PHOSPHATE
     Indication: Surgical preconditioning
  8. FLUDARA [Suspect]
     Active Substance: FLUDARABINE PHOSPHATE
     Indication: Thalassaemia
  9. BUSULFAN [Suspect]
     Active Substance: BUSULFAN
     Indication: Thalassaemia
     Dosage: 8 MG, 4X A DAY
     Route: 041
     Dates: start: 20220602, end: 20220602
  10. BUSULFAN [Suspect]
     Active Substance: BUSULFAN
     Dosage: 10 MG, 4X A DAY
     Route: 041
     Dates: start: 20220603, end: 20220604
  11. BUSULFAN [Suspect]
     Active Substance: BUSULFAN
     Dosage: 14 MG, 4X A DAY
     Route: 041
     Dates: start: 20220605, end: 20220605
  12. SODIUM CHLORIDE [Suspect]
     Active Substance: SODIUM CHLORIDE
     Indication: Medication dilution
     Dosage: 50 ML, 4X A DAY (BUSULFAN 8MG + NS 50ML)
     Route: 041
     Dates: start: 20220602, end: 20220602
  13. SODIUM CHLORIDE [Suspect]
     Active Substance: SODIUM CHLORIDE
     Dosage: 50 ML, 4X A DAY (BUSULFAN 14MG + NS 50 ML)
     Route: 041
     Dates: start: 20220605, end: 20220605
  14. SODIUM CHLORIDE [Suspect]
     Active Substance: SODIUM CHLORIDE
     Dosage: 50 ML, 4X A DAY (BUSULFAN 10MG + NS 50 ML)
     Route: 041
     Dates: start: 20220603, end: 20220604

REACTIONS (4)
  - Neutropenia [Recovering/Resolving]
  - Thrombocytopenia [Recovering/Resolving]
  - White blood cell count decreased [Recovering/Resolving]
  - Hepatic function abnormal [Recovering/Resolving]

NARRATIVE: CASE EVENT DATE: 20220615
